FAERS Safety Report 5140877-8 (Version None)
Quarter: 2006Q4

REPORT INFORMATION
  Report Type: 
  Country: None (occurrence: None)
  Receive Date: 20060901
  Receipt Date: 20060726
  Transmission Date: 20070319
  Serious: No
  Sender: FDA-Public Use
  Company Number: 2006MP000913

PATIENT
  Sex: Female

DRUGS (1)
  1. DACOGEN [Suspect]
     Dosage: IV
     Route: 042

REACTIONS (1)
  - PLATELET COUNT DECREASED [None]
